FAERS Safety Report 5738287-5 (Version None)
Quarter: 2008Q2

REPORT INFORMATION
  Report Type: 
  Country: None (occurrence: None)
  Receive Date: 20080514
  Receipt Date: 20080502
  Transmission Date: 20081010
  Serious: Yes (Hospitalization)
  Sender: FDA-Public Use
  Company Number: US-PFIZER INC-2008039291

PATIENT
  Sex: Female
  Weight: 86.2 kg

DRUGS (4)
  1. LYRICA [Suspect]
     Indication: NEURALGIA
  2. LYRICA [Suspect]
     Indication: BACK INJURY
  3. LYRICA [Suspect]
     Indication: BACK PAIN
  4. LISINOPRIL [Concomitant]

REACTIONS (2)
  - DYSSTASIA [None]
  - MUSCLE DISORDER [None]
